FAERS Safety Report 21035448 (Version 3)
Quarter: 2023Q1

REPORT INFORMATION
  Report Type: Spontaneous
  Country: US (occurrence: US)
  Receive Date: 20220701
  Receipt Date: 20230131
  Transmission Date: 20230418
  Serious: Yes (Other)
  Sender: FDA-Public Use
  Company Number: US-BAYER-2022A085579

PATIENT
  Age: 59 Year
  Sex: Female

DRUGS (2)
  1. CLIMARA PRO [Suspect]
     Active Substance: ESTRADIOL\LEVONORGESTREL
     Indication: Menopause
     Dosage: UNK
     Route: 062
     Dates: start: 20220503
  2. SYNTHROID [Concomitant]
     Active Substance: LEVOTHYROXINE SODIUM
     Indication: Hypothyroidism
     Dosage: UNK

REACTIONS (5)
  - Postmenopausal haemorrhage [Recovered/Resolved]
  - Device adhesion issue [Recovered/Resolved]
  - Ovarian disorder [None]
  - Abdominal pain lower [None]
  - Breast tenderness [None]

NARRATIVE: CASE EVENT DATE: 20220531
